FAERS Safety Report 7627027-0 (Version None)
Quarter: 2011Q3

REPORT INFORMATION
  Report Type: 
  Country: None (occurrence: None)
  Receive Date: 20110721
  Receipt Date: 20110715
  Transmission Date: 20111222
  Serious: Yes (Hospitalization, Disabling, Other)
  Sender: FDA-Public Use
  Company Number: US-MERCK-0910USA01555

PATIENT
  Age: 61 Year
  Sex: Female
  Weight: 55 kg

DRUGS (20)
  1. OMEGA-3 MARINE TRIGLYCERIDES [Concomitant]
     Route: 065
     Dates: start: 20000101
  2. FOSAMAX [Suspect]
     Dosage: A.M
     Route: 048
     Dates: end: 20061108
  3. FOSAMAX [Suspect]
     Indication: OSTEOPENIA
     Dosage: A.M
     Route: 048
     Dates: start: 20010101, end: 20090729
  4. ELAVIL [Concomitant]
     Route: 048
  5. ASPIRIN [Concomitant]
     Route: 065
     Dates: start: 20070101
  6. LOTENSIN HCT [Concomitant]
     Route: 048
     Dates: start: 20030101
  7. PREMARIN [Concomitant]
     Dosage: 1.2 APPLICATOR VAGINALLY
     Route: 067
  8. LEVOTHYROXINE SODIUM [Concomitant]
     Route: 065
  9. FOSAMAX [Suspect]
     Dosage: A.M
     Route: 048
     Dates: end: 20061108
  10. AMITRIPTYLINE HYDROCHLORIDE [Concomitant]
     Indication: SLEEP DISORDER
     Route: 065
     Dates: start: 19850101
  11. VITAMINS (UNSPECIFIED) [Concomitant]
     Route: 048
     Dates: start: 20000101
  12. NIACIN [Concomitant]
     Route: 048
     Dates: start: 20050101
  13. CYANOCOBALAMIN [Concomitant]
     Route: 065
  14. DILAUDID [Concomitant]
     Route: 065
  15. ALENDRONATE SODIUM [Suspect]
     Route: 048
     Dates: start: 20081017, end: 20080101
  16. CALCIUM (UNSPECIFIED) AND VITAMIN D (UNSPECIFIED) [Concomitant]
     Route: 048
     Dates: start: 19830101
  17. ZOCOR [Concomitant]
     Route: 048
     Dates: start: 20030101
  18. VAGIFEM [Concomitant]
     Route: 067
  19. SIMVASTATIN [Concomitant]
     Route: 065
     Dates: start: 20030101
  20. FOSAMAX [Suspect]
     Indication: OSTEOPOROSIS
     Dosage: A.M
     Route: 048
     Dates: start: 20010101, end: 20090729

REACTIONS (24)
  - BUNION [None]
  - FOOT DEFORMITY [None]
  - FRACTURE DELAYED UNION [None]
  - DIARRHOEA [None]
  - PATELLOFEMORAL PAIN SYNDROME [None]
  - NAUSEA [None]
  - VAGINITIS BACTERIAL [None]
  - MENISCUS LESION [None]
  - ARTHRITIS [None]
  - ABDOMINAL DISCOMFORT [None]
  - GASTROENTERITIS [None]
  - RHINITIS ALLERGIC [None]
  - PAIN IN EXTREMITY [None]
  - ANAEMIA [None]
  - INTERVERTEBRAL DISC PROTRUSION [None]
  - ILIOTIBIAL BAND SYNDROME [None]
  - ANXIETY [None]
  - FEMUR FRACTURE [None]
  - FALL [None]
  - CYSTITIS INTERSTITIAL [None]
  - JOINT EFFUSION [None]
  - ARTHRALGIA [None]
  - VULVAL DISORDER [None]
  - FATIGUE [None]
